FAERS Safety Report 14841368 (Version 2)
Quarter: 2018Q2

REPORT INFORMATION
  Report Type: Report from Study
  Country: FR (occurrence: FR)
  Receive Date: 20180503
  Receipt Date: 20180511
  Transmission Date: 20180711
  Serious: Yes (Hospitalization, Other)
  Sender: FDA-Public Use
  Company Number: FR-JAZZ-2018-FR-006959

PATIENT

DRUGS (1)
  1. DEFITELIO [Suspect]
     Active Substance: DEFIBROTIDE SODIUM
     Indication: VENOOCCLUSIVE LIVER DISEASE
     Dosage: 25 MG/KG, QD
     Route: 042
     Dates: start: 20160613, end: 20160624

REACTIONS (6)
  - Pigmentation disorder [Unknown]
  - Incorrect drug administration duration [Unknown]
  - Erythema [Recovered/Resolved]
  - Viral haemorrhagic cystitis [Recovered/Resolved]
  - Frequent bowel movements [Unknown]
  - BK virus infection [Unknown]

NARRATIVE: CASE EVENT DATE: 20160708
